FAERS Safety Report 5576435-0 (Version None)
Quarter: 2007Q4

REPORT INFORMATION
  Report Type: 
  Country: None (occurrence: None)
  Receive Date: 20071228
  Receipt Date: 20071217
  Transmission Date: 20080405
  Serious: Yes (Hospitalization, Other)
  Sender: FDA-Public Use
  Company Number: US-ELI_LILLY_AND_COMPANY-US200712003402

PATIENT
  Age: 82 Year
  Sex: Female

DRUGS (9)
  1. EVISTA [Suspect]
     Indication: OSTEOPOROSIS
  2. FORTEO [Suspect]
     Indication: OSTEOPOROSIS
     Dosage: UNK, UNK
     Dates: start: 20070101, end: 20070101
  3. FORTEO [Suspect]
     Dates: start: 20070101
  4. TORADOL [Concomitant]
     Dosage: 15 TO 20 MG
     Dates: start: 20070101, end: 20070101
  5. CALCIUM [Concomitant]
     Indication: MINERAL SUPPLEMENTATION
  6. LEXAPRO [Concomitant]
  7. M.V.I. [Concomitant]
  8. OCUVITE [Concomitant]
  9. IRON [Concomitant]
     Indication: MINERAL SUPPLEMENTATION

REACTIONS (9)
  - COGNITIVE DISORDER [None]
  - COMPRESSION FRACTURE [None]
  - FALL [None]
  - HIP FRACTURE [None]
  - MUSCLE SPASMS [None]
  - OESOPHAGEAL ADENOCARCINOMA [None]
  - TRANSIENT ISCHAEMIC ATTACK [None]
  - ULCER HAEMORRHAGE [None]
  - VOMITING [None]
